FAERS Safety Report 18333820 (Version 1)
Quarter: 2020Q4

REPORT INFORMATION
  Report Type: Spontaneous
  Country: CN (occurrence: CN)
  Receive Date: 20201001
  Receipt Date: 20201001
  Transmission Date: 20210113
  Serious: Yes (Hospitalization)
  Sender: FDA-Public Use
  Company Number: CN-PFIZER INC-2020375382

PATIENT
  Age: 84 Year
  Sex: Female
  Weight: 36 kg

DRUGS (1)
  1. LINEZOLID. [Suspect]
     Active Substance: LINEZOLID
     Indication: INFECTION
     Dosage: 0.6 G, 2X/DAY
     Route: 041
     Dates: start: 20200616, end: 20200630

REACTIONS (5)
  - Pruritus allergic [Recovering/Resolving]
  - Hypersensitivity [Recovering/Resolving]
  - Pruritus [Unknown]
  - Erythema [Recovered/Resolved]
  - Dermatitis allergic [Recovering/Resolving]

NARRATIVE: CASE EVENT DATE: 20200616
